FAERS Safety Report 6785190-8 (Version None)
Quarter: 2010Q2

REPORT INFORMATION
  Report Type: 
  Country: None (occurrence: None)
  Receive Date: 20100621
  Receipt Date: 20100621
  Transmission Date: 20101027
  Serious: No
  Sender: FDA-Public Use
  Company Number: None

PATIENT
  Age: 56 Year
  Sex: Male
  Weight: 90.7194 kg

DRUGS (1)
  1. GEODON [Suspect]
     Indication: INSOMNIA
     Dosage: 50 MG 2 TABLETS AT NIGHT PO
     Route: 048
     Dates: start: 20060401, end: 20080401

REACTIONS (1)
  - ERECTILE DYSFUNCTION [None]
